FAERS Safety Report 23450807 (Version 1)
Quarter: 2024Q1

REPORT INFORMATION
  Report Type: Spontaneous
  Country: US (occurrence: None)
  Receive Date: 20240126
  Receipt Date: 20240126
  Transmission Date: 20240410
  Serious: Yes (Death)
  Sender: FDA-Public Use
  Company Number: None

PATIENT
  Age: 93 Year
  Sex: Female

DRUGS (6)
  1. PRALUENT [Suspect]
     Active Substance: ALIROCUMAB
     Indication: Hypercholesterolaemia
     Dosage: FREQUENCY : EVERY OTHER WEEK;?
     Route: 058
     Dates: start: 20220425, end: 20240118
  2. NEXIUM 20MG [Concomitant]
     Dates: start: 20230211, end: 20240118
  3. DILTIAZEM CD 120MG [Concomitant]
     Dates: start: 20230211, end: 20240118
  4. METOPROLOL TARTRATE [Concomitant]
     Active Substance: METOPROLOL TARTRATE
     Dates: start: 20230211, end: 20240118
  5. ELIQUIS [Concomitant]
     Active Substance: APIXABAN
     Dates: start: 20230211, end: 20240118
  6. CARVEDILOL [Concomitant]
     Active Substance: CARVEDILOL
     Dates: start: 20220725, end: 20230130

REACTIONS (1)
  - Death [None]

NARRATIVE: CASE EVENT DATE: 20240118
